FAERS Safety Report 6247529-1 (Version None)
Quarter: 2009Q2

REPORT INFORMATION
  Report Type: 
  Country: None (occurrence: None)
  Receive Date: 20090626
  Receipt Date: 20090623
  Transmission Date: 20091009
  Serious: Yes (Death, Hospitalization, Other)
  Sender: FDA-Public Use
  Company Number: US-CELGENEUS-163-21880-09042279

PATIENT
  Sex: Female
  Weight: 66.284 kg

DRUGS (14)
  1. REVLIMID [Suspect]
     Route: 048
     Dates: start: 20090414, end: 20090422
  2. ATENOLOL [Concomitant]
     Indication: DRUG USE FOR UNKNOWN INDICATION
     Route: 065
  3. ASPIRIN [Concomitant]
     Indication: DRUG USE FOR UNKNOWN INDICATION
     Route: 065
  4. HYDROMORPHONE [Concomitant]
     Indication: DRUG USE FOR UNKNOWN INDICATION
     Route: 065
  5. COLACE [Concomitant]
     Indication: DRUG USE FOR UNKNOWN INDICATION
     Route: 065
  6. ONDANSETRON [Concomitant]
     Indication: DRUG USE FOR UNKNOWN INDICATION
     Route: 065
  7. FUROSEMIDE INTENSOL [Concomitant]
     Indication: DRUG USE FOR UNKNOWN INDICATION
     Route: 065
  8. SENNA [Concomitant]
     Indication: DRUG USE FOR UNKNOWN INDICATION
     Route: 065
  9. METOCLOPRAMIDE [Concomitant]
     Indication: DRUG USE FOR UNKNOWN INDICATION
     Route: 065
  10. SPIRONOLACTONE [Concomitant]
     Indication: DRUG USE FOR UNKNOWN INDICATION
     Route: 065
  11. MIRALAX [Concomitant]
     Indication: DRUG USE FOR UNKNOWN INDICATION
     Route: 065
  12. DILAUDID [Concomitant]
     Indication: PAIN
     Route: 051
     Dates: start: 20090401
  13. LISINOPRIL AND HYDROCHLOROTHIAZIDE [Concomitant]
     Indication: DRUG USE FOR UNKNOWN INDICATION
     Route: 065
  14. FENTANYL-100 [Concomitant]
     Indication: PAIN
     Route: 065

REACTIONS (10)
  - ASCITES [None]
  - ATRIAL FIBRILLATION [None]
  - CONSTIPATION [None]
  - DEHYDRATION [None]
  - DISEASE PROGRESSION [None]
  - FATIGUE [None]
  - HEPATIC FUNCTION ABNORMAL [None]
  - PERITONITIS BACTERIAL [None]
  - RENAL FAILURE ACUTE [None]
  - VOMITING [None]
